FAERS Safety Report 8142336-7 (Version None)
Quarter: 2012Q1

REPORT INFORMATION
  Report Type: 
  Country: None (occurrence: None)
  Receive Date: 20120103
  Receipt Date: 20110916
  Transmission Date: 20120608
  Serious: No
  Sender: FDA-Public Use
  Company Number: AE-2011-001589

PATIENT
  Age: 55 Year
  Sex: Female
  Weight: 58.9676 kg

DRUGS (4)
  1. INCIVEK [Suspect]
     Dosage: 2250 MG (750 MG, 3 IN 1 D)
     Dates: start: 20110913
  2. IBUPROFEN (ADVIL) [Concomitant]
  3. RIBAVIRIN [Concomitant]
  4. PEGASYS [Concomitant]

REACTIONS (2)
  - PRURITUS [None]
  - RASH [None]
